FAERS Safety Report 12482309 (Version 1)
Quarter: 2016Q2

REPORT INFORMATION
  Report Type: Spontaneous
  Country: US (occurrence: US)
  Receive Date: 20160620
  Receipt Date: 20160620
  Transmission Date: 20160815
  Serious: No
  Sender: FDA-Public Use
  Company Number: PHEH2016US014453

PATIENT
  Sex: Male

DRUGS (1)
  1. COSENTYX [Suspect]
     Active Substance: SECUKINUMAB
     Indication: PSORIASIS
     Dosage: 300 MG, (TWICE A MONTH)
     Route: 058
     Dates: start: 20151128

REACTIONS (3)
  - Psoriasis [Unknown]
  - Inappropriate schedule of drug administration [Unknown]
  - Incorrect dosage administered [Unknown]
